FAERS Safety Report 9523190 (Version 1)
Quarter: 2013Q3

REPORT INFORMATION
  Report Type: Spontaneous
  Country: NL (occurrence: NL)
  Receive Date: 20130913
  Receipt Date: 20130913
  Transmission Date: 20140515
  Serious: Yes (Other)
  Sender: FDA-Public Use
  Company Number: NL-GLAXOSMITHKLINE-B0922186A

PATIENT
  Age: 32 Year
  Sex: Male
  Weight: 75 kg

DRUGS (5)
  1. SEROXAT [Suspect]
     Indication: DEPRESSION
     Route: 048
     Dates: start: 19990601, end: 19991101
  2. FEVARIN [Concomitant]
     Route: 048
     Dates: start: 1999
  3. ANAFRANIL [Concomitant]
     Route: 048
     Dates: start: 1999
  4. ALCOHOLIC BEVERAGE [Concomitant]
     Route: 048
     Dates: start: 1999
  5. OXAZEPAM [Concomitant]
     Dosage: 10MG THREE TIMES PER DAY
     Route: 048
     Dates: start: 1995

REACTIONS (1)
  - Aggression [Recovered/Resolved]
